FAERS Safety Report 10667509 (Version 3)
Quarter: 2015Q1

REPORT INFORMATION
  Report Type: Spontaneous
  Country: CH (occurrence: None)
  Receive Date: 20141218
  Receipt Date: 20150126
  Transmission Date: 20150720
  Serious: Yes (Hospitalization)
  Sender: FDA-Public Use
  Company Number: 20140808

PATIENT
  Age: 49 Year
  Sex: Male
  Weight: 92 kg

DRUGS (14)
  1. MONOFER [Suspect]
     Active Substance: IRON ISOMALTOSIDE 1000
     Indication: PRODUCT USED FOR UNKNOWN INDICATION
     Route: 042
     Dates: start: 20120905
  2. TRAMAL [Concomitant]
     Active Substance: TRAMADOL
  3. CHOLESTAGEL [Concomitant]
     Active Substance: COLESEVELAM HYDROCHLORIDE
  4. COLECALCIFEROL [Concomitant]
     Active Substance: CHOLECALCIFEROL
  5. HYDROXOCOBALAMIN [Concomitant]
     Active Substance: HYDROXOCOBALAMIN
  6. EPOETIN ALFA [Concomitant]
     Active Substance: ERYTHROPOIETIN
  7. GLADEM [Concomitant]
     Active Substance: SERTRALINE HYDROCHLORIDE
  8. HUMIRA [Concomitant]
     Active Substance: ADALIMUMAB
  9. AZATHIOPRINE. [Concomitant]
     Active Substance: AZATHIOPRINE
  10. VENOFER [Suspect]
     Active Substance: IRON SUCROSE
     Indication: PRODUCT USED FOR UNKNOWN INDICATION
     Dosage: SEE NARRATIVE FOR
  11. GLUCOSE 1-PHOSPHATE SODIUM [Concomitant]
  12. FERINJECT [Suspect]
     Active Substance: FERRIC CARBOXYMALTOSE
     Indication: IRON DEFICIENCY ANAEMIA
     Dosage: SEE NARRATIVE FOR
  13. ACTONEL [Concomitant]
     Active Substance: RISEDRONATE SODIUM
  14. FOLSAN [Concomitant]
     Active Substance: FOLIC ACID

REACTIONS (8)
  - Osteonecrosis [None]
  - Overdose [None]
  - Osteoporosis [None]
  - Hypophosphataemia [None]
  - Hypersensitivity [None]
  - Iron deficiency anaemia [None]
  - Pain [None]
  - Hip fracture [None]

NARRATIVE: CASE EVENT DATE: 20090224
